FAERS Safety Report 22636866 (Version 1)
Quarter: 2023Q2

REPORT INFORMATION
  Report Type: Spontaneous
  Country: AU (occurrence: AU)
  Receive Date: 20230626
  Receipt Date: 20230626
  Transmission Date: 20230722
  Serious: Yes (Other)
  Sender: FDA-Public Use
  Company Number: AU-ALKEM LABORATORIES LIMITED-AU-ALKEM-2023-06790

PATIENT
  Sex: Female
  Weight: 66 kg

DRUGS (8)
  1. MORPHINE SULFATE [Suspect]
     Active Substance: MORPHINE SULFATE
     Indication: Anaesthesia
     Dosage: 200 MICROGRAM (AT SECOND TO THIRD LUMBAR SPACE) (PRESERVATIVE FREE)
     Route: 037
  2. ACETAMINOPHEN [Concomitant]
     Active Substance: ACETAMINOPHEN
     Indication: Product used for unknown indication
     Dosage: 1000 MILLIGRAM
     Route: 042
  3. PHENYLEPHRINE HYDROCHLORIDE [Concomitant]
     Active Substance: PHENYLEPHRINE HYDROCHLORIDE
     Indication: Product used for unknown indication
     Dosage: UNK (TITRATED DOSE TO BLOOD PRESSURE) (INFUSION)
     Route: 065
  4. BUPIVACAINE [Concomitant]
     Active Substance: BUPIVACAINE
     Indication: Anaesthesia
     Dosage: 2.5 MILLILITER (AT THE SECOND TO THIRD LUMBAR SPACE)
     Route: 065
  5. FENTANYL [Concomitant]
     Active Substance: FENTANYL
     Indication: Anaesthesia
     Dosage: 20 MICROGRAM (AT THE SECOND TO THIRD LUMBAR SPACE)
     Route: 065
  6. ONDANSETRON [Concomitant]
     Active Substance: ONDANSETRON
     Indication: Product used for unknown indication
     Dosage: 4 MILLIGRAM
     Route: 042
  7. OXYTOCIN [Concomitant]
     Active Substance: OXYTOCIN
     Indication: Product used for unknown indication
     Dosage: UNK
     Route: 065
  8. PARECOXIB [Concomitant]
     Active Substance: PARECOXIB
     Indication: Product used for unknown indication
     Dosage: 40 MILLIGRAM
     Route: 042

REACTIONS (4)
  - Hypothermia [Unknown]
  - Paradoxical drug reaction [Unknown]
  - Hypotension [Unknown]
  - Pruritus [Unknown]
